FAERS Safety Report 7717560-5 (Version None)
Quarter: 2011Q3

REPORT INFORMATION
  Report Type: 
  Country: None (occurrence: None)
  Receive Date: 20110830
  Receipt Date: 20110823
  Transmission Date: 20111222
  Serious: Yes (Hospitalization, Congenital Anomaly, Other)
  Sender: FDA-Public Use
  Company Number: US-TEVA-297926USA

PATIENT
  Sex: Male

DRUGS (2)
  1. MISOPROSTOL [Suspect]
     Indication: ABORTION INDUCED
     Dosage: 200UG X 8 TABLETS
     Route: 064
  2. METHOTREXATE [Suspect]
     Indication: ABORTION INDUCED
     Route: 064

REACTIONS (19)
  - APGAR SCORE ABNORMAL [None]
  - NASAL DISORDER [None]
  - LOW SET EARS [None]
  - HYPOXIA [None]
  - RIB DEFORMITY [None]
  - LUNG DISORDER [None]
  - OLFACTORY NERVE DISORDER [None]
  - CLEFT PALATE [None]
  - FINGER DEFORMITY [None]
  - FOETAL HEART RATE ABNORMAL [None]
  - DISORDER OF ORBIT [None]
  - MICROGNATHIA [None]
  - CRYPTORCHISM [None]
  - BONE DISORDER [None]
  - PULMONARY HYPOPLASIA [None]
  - PERSISTENT FOETAL CIRCULATION [None]
  - DELAYED FONTANELLE CLOSURE [None]
  - FOETAL GROWTH RESTRICTION [None]
  - CONGENITAL ANOMALY [None]
